FAERS Safety Report 6144662-X (Version None)
Quarter: 2009Q2

REPORT INFORMATION
  Report Type: 
  Country: None (occurrence: None)
  Receive Date: 20090406
  Receipt Date: 20090331
  Transmission Date: 20091009
  Serious: Yes (Death, Hospitalization, Other)
  Sender: FDA-Public Use
  Company Number: B0443459A

PATIENT
  Sex: Male

DRUGS (22)
  1. LEXIVA [Suspect]
     Indication: ACQUIRED IMMUNODEFICIENCY SYNDROME
     Dosage: 700MG TWICE PER DAY
     Route: 048
     Dates: start: 20060118, end: 20060127
  2. FLAGYL [Suspect]
     Indication: PERIRECTAL ABSCESS
     Dosage: 250MG FOUR TIMES PER DAY
     Route: 048
     Dates: start: 20051019, end: 20051227
  3. NORVIR [Suspect]
     Indication: ACQUIRED IMMUNODEFICIENCY SYNDROME
     Dosage: 200MG PER DAY
     Route: 048
     Dates: start: 20060118, end: 20060127
  4. COMBIVIR [Suspect]
     Indication: ACQUIRED IMMUNODEFICIENCY SYNDROME
     Dosage: 2TAB PER DAY
     Route: 048
     Dates: start: 20020503, end: 20070907
  5. STOCRIN [Concomitant]
     Indication: ACQUIRED IMMUNODEFICIENCY SYNDROME
     Dosage: 600MG PER DAY
     Route: 048
     Dates: start: 20051020, end: 20051031
  6. REYATAZ [Concomitant]
     Indication: ACQUIRED IMMUNODEFICIENCY SYNDROME
     Dosage: 400MG PER DAY
     Route: 048
     Dates: start: 20040319, end: 20051019
  7. GASTER [Concomitant]
     Indication: GASTRIC ULCER
     Dosage: 10MG TWICE PER DAY
     Route: 065
     Dates: start: 20050401, end: 20051019
  8. LANSOPRAZOLE [Concomitant]
     Indication: GASTRIC ULCER
     Dosage: 30MG PER DAY
     Route: 048
     Dates: start: 20051224, end: 20060110
  9. AMARYL [Concomitant]
     Indication: DIABETES MELLITUS
     Dosage: 1MG PER DAY
     Route: 048
     Dates: start: 20050401
  10. MELBIN [Concomitant]
     Indication: DIABETES MELLITUS
     Dosage: 250MG TWICE PER DAY
     Route: 048
     Dates: start: 20060111
  11. CEFMETAZON [Concomitant]
     Indication: STOMA CARE
     Dosage: 1G TWICE PER DAY
     Dates: start: 20051107, end: 20051109
  12. VOLTAREN [Concomitant]
     Indication: CANCER PAIN
     Dosage: 25MG PER DAY
     Route: 065
     Dates: start: 20051224, end: 20060110
  13. CALONAL [Concomitant]
     Indication: CANCER PAIN
     Dosage: 400MG PER DAY
     Route: 065
     Dates: start: 20060220
  14. DIFLUCAN [Concomitant]
     Indication: CYSTITIS
     Dosage: 100MG TWICE PER DAY
     Route: 048
     Dates: start: 20060204, end: 20060213
  15. STOCRIN [Concomitant]
     Route: 048
     Dates: start: 20060314, end: 20080220
  16. LANSOPRAZOLE [Concomitant]
     Dosage: 30MG PER DAY
     Route: 048
     Dates: start: 20070401, end: 20080220
  17. MEROPEN [Concomitant]
     Indication: URINARY TRACT INFECTION
     Dosage: 2G PER DAY
     Route: 042
     Dates: start: 20080130, end: 20080201
  18. AMOBAN [Concomitant]
     Indication: INSOMNIA
     Dosage: 7.5MG PER DAY
     Route: 048
     Dates: start: 20070401, end: 20070624
  19. AZACTAM [Concomitant]
     Indication: URINARY TRACT INFECTION
     Dosage: 2G PER DAY
     Dates: start: 20080203, end: 20080213
  20. ARGAMATE [Concomitant]
     Dosage: 50G PER DAY
     Route: 048
     Dates: start: 20070531, end: 20080220
  21. DUROTEP [Concomitant]
     Indication: CANCER PAIN
     Dosage: 2.5MG PER DAY
     Route: 062
     Dates: start: 20070606, end: 20080404
  22. ZIAGEN [Concomitant]
     Indication: ACQUIRED IMMUNODEFICIENCY SYNDROME
     Dosage: 600MG PER DAY
     Route: 048
     Dates: start: 20070908, end: 20080220

REACTIONS (6)
  - ANAEMIA [None]
  - CONVULSION [None]
  - DIARRHOEA [None]
  - PERIRECTAL ABSCESS [None]
  - PUS IN STOOL [None]
  - RECTAL CANCER [None]
